FAERS Safety Report 5075591-0 (Version None)
Quarter: 2006Q3

REPORT INFORMATION
  Report Type: 
  Country: None (occurrence: None)
  Receive Date: 20060809
  Receipt Date: 20060731
  Transmission Date: 20061208
  Serious: Yes (Hospitalization)
  Sender: FDA-Public Use
  Company Number: FR-ROCHE-457845

PATIENT
  Age: 57 Year
  Sex: Male
  Weight: 142 kg

DRUGS (13)
  1. ROCEPHIN [Suspect]
     Route: 042
     Dates: start: 20060524, end: 20060621
  2. BACTRIM [Suspect]
     Route: 048
     Dates: start: 20060530, end: 20060621
  3. LOVENOX [Concomitant]
     Route: 058
     Dates: start: 20060530, end: 20060612
  4. SKENAN [Concomitant]
     Route: 048
     Dates: start: 20060517, end: 20060608
  5. PROFENID [Concomitant]
     Route: 042
     Dates: start: 20060515, end: 20060526
  6. TOPALGIC [Concomitant]
     Route: 048
     Dates: start: 20060608, end: 20060620
  7. GENTAMICIN [Concomitant]
     Dates: start: 20060524, end: 20060530
  8. MORPHINE [Concomitant]
     Dosage: STOPPED 17 MAY, RESTARTED AT 40 MG TWICE DAILY FROM 20 JUN 06.
     Route: 042
     Dates: start: 20060515
  9. MORPHINE SULFATE [Concomitant]
     Dosage: DOSAGE OF 20 MG IN INTERDOSE SINCE 17 MAY 06
     Dates: start: 20060517
  10. 1 CONCOMITANT DRUG [Concomitant]
     Dosage: REPORTED AS HNF.
     Dates: start: 20060608, end: 20060620
  11. DITROPAN [Concomitant]
     Dosage: 3 DOSES DAILY
     Dates: start: 20030615
  12. OMEPRAZOLE [Concomitant]
     Dates: start: 20030615
  13. STILNOX [Concomitant]
     Dosage: I DOSE A DAY
     Dates: start: 20030615

REACTIONS (2)
  - INTERVERTEBRAL DISCITIS [None]
  - PANCYTOPENIA [None]
